FAERS Safety Report 15738954 (Version 1)
Quarter: 2018Q4

REPORT INFORMATION
  Report Type: Spontaneous
  Country: US (occurrence: US)
  Receive Date: 20181219
  Receipt Date: 20181219
  Transmission Date: 20190205
  Serious: No
  Sender: FDA-Public Use
  Company Number: US-BAYER-2018-224679

PATIENT
  Sex: Female

DRUGS (3)
  1. ALIQOPA [Suspect]
     Active Substance: COPANLISIB
  2. ALIQOPA [Suspect]
     Active Substance: COPANLISIB
     Dosage: UNK
  3. ALIQOPA [Suspect]
     Active Substance: COPANLISIB
     Dosage: UNK

REACTIONS (2)
  - Aspartate aminotransferase increased [Not Recovered/Not Resolved]
  - Alanine aminotransferase increased [Not Recovered/Not Resolved]
